FAERS Safety Report 10029656 (Version 1)
Quarter: 2014Q1

REPORT INFORMATION
  Report Type: Spontaneous
  Country: US (occurrence: None)
  Receive Date: 20140321
  Receipt Date: 20140321
  Transmission Date: 20141002
  Serious: No
  Sender: FDA-Public Use
  Company Number: None

PATIENT
  Age: 52 Year
  Sex: Female
  Weight: 56.7 kg

DRUGS (5)
  1. ALENDRONATE [Suspect]
     Indication: OSTEOPOROSIS
     Dosage: 1 PILL
     Route: 048
     Dates: start: 20140224, end: 20140303
  2. ACTEKYUA [Concomitant]
  3. VITAMIN C [Concomitant]
  4. VITAMIN D3 [Concomitant]
  5. CALCIUM [Concomitant]

REACTIONS (4)
  - Gait disturbance [None]
  - Nausea [None]
  - Shock hypoglycaemic [None]
  - Bone pain [None]
